FAERS Safety Report 12161757 (Version 1)
Quarter: 2016Q1

REPORT INFORMATION
  Report Type: Report from Study
  Country: US (occurrence: US)
  Receive Date: 20160309
  Receipt Date: 20160309
  Transmission Date: 20160526
  Serious: Yes (Other)
  Sender: FDA-Public Use
  Company Number: US-ROCHE-1706475

PATIENT
  Age: 68 Year
  Sex: Female
  Weight: 67.19 kg

DRUGS (18)
  1. ESBRIET [Suspect]
     Active Substance: PIRFENIDONE
     Indication: IDIOPATHIC PULMONARY FIBROSIS
     Dosage: 7 DAYS OFF 14 DAYS ON
     Route: 048
  2. DYAZIDE [Concomitant]
     Active Substance: HYDROCHLOROTHIAZIDE\TRIAMTERENE
     Dosage: 50-25MG TABLET IN THE MORNING
     Route: 048
  3. VITAMIN D3 [Concomitant]
     Active Substance: CHOLECALCIFEROL
     Route: 048
  4. CALCIUM CARBONATE. [Concomitant]
     Active Substance: CALCIUM CARBONATE
     Dosage: WITH MEALS
     Route: 048
  5. SIMVASTATIN. [Concomitant]
     Active Substance: SIMVASTATIN
     Dosage: EVERY EVENING
     Route: 065
  6. ESTER-C (UNITED STATES) [Concomitant]
     Route: 048
  7. HOMATROPINE/HYDROCODONE [Concomitant]
     Dosage: 5 TO 1.5 MG?90 MIN BEFORE BREATHING TEST
     Route: 065
  8. ESBRIET [Suspect]
     Active Substance: PIRFENIDONE
     Dosage: 1 CAPSULES
     Route: 048
     Dates: start: 201601, end: 201601
  9. ESBRIET [Suspect]
     Active Substance: PIRFENIDONE
     Dosage: 3 CAPSULES
     Route: 048
  10. ASPIRIN. [Concomitant]
     Active Substance: ASPIRIN
     Dosage: DAILY
     Route: 048
  11. BENZONATATE. [Concomitant]
     Active Substance: BENZONATATE
     Indication: COUGH
     Dosage: AS NEEDED
     Route: 048
  12. PSYLLIUM [Concomitant]
     Active Substance: PLANTAGO SEED
     Route: 065
  13. VOLTAREN [Concomitant]
     Active Substance: DICLOFENAC SODIUM
     Route: 061
  14. COENZYME Q10 COMPLEX (UNK INGREDIENTS) [Concomitant]
     Route: 048
  15. NIFEDIPINE. [Concomitant]
     Active Substance: NIFEDIPINE
     Route: 048
  16. DEXILANT [Concomitant]
     Active Substance: DEXLANSOPRAZOLE
     Route: 065
  17. PRILOSEC [Concomitant]
     Active Substance: OMEPRAZOLE MAGNESIUM
     Route: 048
  18. NASONEX [Concomitant]
     Active Substance: MOMETASONE FUROATE
     Dosage: 2 SPRAYS EACH NOSTRIL
     Route: 065

REACTIONS (10)
  - Pharyngeal oedema [Recovered/Resolved]
  - Hypersensitivity [Recovered/Resolved]
  - Local swelling [Recovered/Resolved]
  - Swelling face [Recovered/Resolved]
  - Erythema [Recovered/Resolved]
  - Abdominal pain upper [Unknown]
  - Rash [Unknown]
  - Urticaria [Recovered/Resolved]
  - Pruritus [Unknown]
  - Feeling hot [Unknown]

NARRATIVE: CASE EVENT DATE: 201601
